FAERS Safety Report 23982396 (Version 1)
Quarter: 2024Q2

REPORT INFORMATION
  Report Type: Spontaneous
  Country: US (occurrence: None)
  Receive Date: 20240617
  Receipt Date: 20240617
  Transmission Date: 20240715
  Serious: No
  Sender: FDA-Public Use
  Company Number: None

PATIENT
  Sex: Female

DRUGS (1)
  1. VERZENIO [Suspect]
     Active Substance: ABEMACICLIB
     Indication: Breast cancer female
     Dosage: FREQUENCY : TWICE A DAY;?
     Route: 048
     Dates: start: 202405

REACTIONS (10)
  - Fatigue [None]
  - Diarrhoea [None]
  - Abdominal pain upper [None]
  - Nausea [None]
  - Flatulence [None]
  - Headache [None]
  - Decreased appetite [None]
  - Asthenia [None]
  - Dyspepsia [None]
  - Abnormal loss of weight [None]
